FAERS Safety Report 4498553-0 (Version None)
Quarter: 2004Q4

REPORT INFORMATION
  Report Type: 
  Country: None (occurrence: None)
  Receive Date: 20041105
  Receipt Date: 20041027
  Transmission Date: 20050328
  Serious: Yes (Hospitalization, Other)
  Sender: FDA-Public Use
  Company Number: 2004084459

PATIENT
  Age: 51 Year
  Sex: Female

DRUGS (1)
  1. PROCARDIA XL [Suspect]
     Indication: ILL-DEFINED DISORDER
     Dosage: 90 MG

REACTIONS (1)
  - INTESTINAL OBSTRUCTION [None]
